FAERS Safety Report 8508236-5 (Version None)
Quarter: 2012Q3

REPORT INFORMATION
  Report Type: 
  Country: None (occurrence: None)
  Receive Date: 20120713
  Receipt Date: 20120704
  Transmission Date: 20120928
  Serious: Yes (Other)
  Sender: FDA-Public Use
  Company Number: JP-VERTEX PHARMACEUTICALS INC.-AE-2012-007731

PATIENT
  Age: 67 Year
  Sex: Male

DRUGS (17)
  1. TELAVIC (TELAPREVIR) [Suspect]
     Indication: HEPATITIS C
     Route: 048
     Dates: start: 20120221, end: 20120514
  2. URSO 250 [Concomitant]
     Route: 048
     Dates: end: 20120312
  3. HIRUDOID LOTION [Concomitant]
     Route: 051
     Dates: start: 20120502
  4. PEGINTERFERON ALFA-2B [Concomitant]
     Indication: HEPATITIS C
     Route: 058
     Dates: start: 20120221, end: 20120520
  5. HIRUDOID SOFT [Concomitant]
     Route: 061
     Dates: start: 20120410
  6. GENTAMICIN [Concomitant]
     Route: 061
     Dates: start: 20120410
  7. PROMACTA [Concomitant]
     Route: 048
     Dates: start: 20120417
  8. GASMOTIN [Concomitant]
     Route: 048
     Dates: start: 20120417
  9. RINDERON-V [Concomitant]
     Route: 061
     Dates: start: 20120502
  10. HIRUDOID SOFT [Concomitant]
     Route: 061
     Dates: start: 20120502
  11. RIBAVIRIN [Concomitant]
     Indication: HEPATITIS C
     Route: 048
     Dates: start: 20120221, end: 20120520
  12. ROXATIDINE ACETATE HCL [Concomitant]
     Route: 048
     Dates: start: 20120417
  13. CLOBETASOL PROPIONATE [Concomitant]
     Route: 061
     Dates: start: 20120502
  14. OLOPATADINE HCL [Concomitant]
     Route: 048
     Dates: start: 20120502
  15. WHITE PETROLATUM [Concomitant]
     Route: 051
     Dates: start: 20120508
  16. ANTEBATE OINTMENT [Concomitant]
     Route: 061
     Dates: start: 20120410
  17. MARZULENE-S [Concomitant]
     Route: 048
     Dates: start: 20120417

REACTIONS (1)
  - DRUG ERUPTION [None]
